FAERS Safety Report 11863890 (Version 2)
Quarter: 2016Q1

REPORT INFORMATION
  Report Type: Spontaneous
  Country: RS (occurrence: RS)
  Receive Date: 20151223
  Receipt Date: 20160209
  Transmission Date: 20160526
  Serious: Yes (Death, Hospitalization, Disabling, Other)
  Sender: FDA-Public Use
  Company Number: RS-CELGENE-SBR-2015121447

PATIENT
  Age: 63 Year
  Sex: Male

DRUGS (10)
  1. AZACITIDINE INJECTABLE [Suspect]
     Active Substance: AZACITIDINE
     Dosage: DOSE RESUCED BY 50%
     Route: 058
     Dates: end: 20151001
  2. BROMAZEPAM [Concomitant]
     Active Substance: BROMAZEPAM
     Indication: PRODUCT USED FOR UNKNOWN INDICATION
     Route: 065
     Dates: start: 20150925, end: 201511
  3. AZACITIDINE INJECTABLE [Suspect]
     Active Substance: AZACITIDINE
     Dosage: 150/100
     Route: 058
     Dates: start: 20150517
  4. ACICLOVIR [Concomitant]
     Active Substance: ACYCLOVIR
     Indication: PROPHYLAXIS
     Route: 065
     Dates: start: 20150517
  5. LETROX [Concomitant]
     Indication: HYPOTHYROIDISM
     Route: 065
     Dates: start: 2012, end: 201511
  6. DIFLUCAN [Concomitant]
     Active Substance: FLUCONAZOLE
     Indication: PROPHYLAXIS
     Route: 065
     Dates: start: 20150517
  7. AZACITIDINE INJECTABLE [Suspect]
     Active Substance: AZACITIDINE
     Indication: MYELODYSPLASTIC SYNDROME
     Route: 058
  8. AZACITIDINE INJECTABLE [Suspect]
     Active Substance: AZACITIDINE
     Route: 058
  9. SIDATA [Concomitant]
     Indication: STRESS
     Route: 065
     Dates: start: 20150925, end: 201511
  10. CIPROCINAL [Concomitant]
     Active Substance: CIPROFLOXACIN
     Indication: PROPHYLAXIS
     Route: 065
     Dates: start: 20150517

REACTIONS (6)
  - Myelodysplastic syndrome [Unknown]
  - Anxiety [Not Recovered/Not Resolved]
  - No therapeutic response [Unknown]
  - Completed suicide [Fatal]
  - Depression [Not Recovered/Not Resolved]
  - Cytopenia [Recovered/Resolved]

NARRATIVE: CASE EVENT DATE: 20150923
